FAERS Safety Report 5862274-X (Version None)
Quarter: 2008Q3

REPORT INFORMATION
  Report Type: 
  Country: None (occurrence: None)
  Receive Date: 20080828
  Receipt Date: 20080828
  Transmission Date: 20090109
  Serious: Yes (Hospitalization)
  Sender: FDA-Public Use
  Company Number: None

PATIENT
  Sex: Male
  Weight: 86.6 kg

DRUGS (11)
  1. HEPARIN [Suspect]
     Indication: THERAPEUTIC PROCEDURE
     Dosage: USED IN PACEMAKER INSERTION OT IV BOLUS
     Route: 040
     Dates: start: 20080805, end: 20080805
  2. LOVENOX [Suspect]
     Indication: PULMONARY EMBOLISM
     Dosage: 90MG Q12 HOURS SQ 7 DOSES
     Route: 058
     Dates: start: 20080807, end: 20080809
  3. ASPIRIN [Concomitant]
  4. PLAVIX [Concomitant]
  5. CARDIZEM [Concomitant]
  6. CARDIZEM [Concomitant]
  7. METOPROLOL TARTRATE [Concomitant]
  8. PROTONIX [Concomitant]
  9. ALTACE [Concomitant]
  10. ZANTAC [Concomitant]
  11. ZOCOR [Concomitant]

REACTIONS (3)
  - LIVER FUNCTION TEST ABNORMAL [None]
  - PLATELET COUNT DECREASED [None]
  - PULMONARY EMBOLISM [None]
